FAERS Safety Report 5706946-6 (Version None)
Quarter: 2008Q2

REPORT INFORMATION
  Report Type: 
  Country: None (occurrence: None)
  Receive Date: 20080415
  Receipt Date: 20080415
  Transmission Date: 20081010
  Serious: Yes (Hospitalization)
  Sender: FDA-Public Use
  Company Number: None

PATIENT
  Sex: Male
  Weight: 109.7705 kg

DRUGS (2)
  1. CISPLATIN [Suspect]
     Indication: TONGUE NEOPLASM MALIGNANT STAGE UNSPECIFIED
     Dosage: 100MG/M2 EVERY 21 DAYS IV X1
     Route: 042
     Dates: start: 20080310, end: 20080310
  2. DOCETAXEL [Suspect]
     Dosage: 75MG/M2 EVERY 21 DAYS IV X1
     Route: 042
     Dates: start: 20080310, end: 20080310

REACTIONS (5)
  - AMNESIA [None]
  - CONFUSIONAL STATE [None]
  - CONVERSION DISORDER [None]
  - DEPRESSED LEVEL OF CONSCIOUSNESS [None]
  - MENTAL STATUS CHANGES [None]
